FAERS Safety Report 8487056-4 (Version None)
Quarter: 2012Q3

REPORT INFORMATION
  Report Type: 
  Country: None (occurrence: None)
  Receive Date: 20120704
  Receipt Date: 20120627
  Transmission Date: 20120928
  Serious: Yes (Hospitalization)
  Sender: FDA-Public Use
  Company Number: PHEH2012US005474

PATIENT
  Sex: Female
  Weight: 90.703 kg

DRUGS (6)
  1. SEROQUEL [Concomitant]
     Indication: DEPRESSION
  2. RISPERIDONE [Concomitant]
  3. CYMBALTA [Concomitant]
     Indication: DEPRESSION
     Dosage: 30 MG, UNK
  4. AMLODIPINE [Concomitant]
  5. GILENYA [Suspect]
     Dosage: 0.5 MG, QD
     Route: 048
  6. GILENYA [Suspect]
     Indication: MULTIPLE SCLEROSIS
     Dosage: 0.5 MG, QD
     Route: 048
     Dates: start: 20110906

REACTIONS (4)
  - FACIAL PAIN [None]
  - LIVER INJURY [None]
  - NEURALGIA [None]
  - HEPATIC ENZYME INCREASED [None]
